APPROVED DRUG PRODUCT: CEFACLOR
Active Ingredient: CEFACLOR
Strength: EQ 500MG BASE
Dosage Form/Route: CAPSULE;ORAL
Application: A064148 | Product #002
Applicant: CHARTWELL RX SCIENCES LLC
Approved: May 23, 1996 | RLD: No | RS: No | Type: DISCN